FAERS Safety Report 22002788 (Version 2)
Quarter: 2023Q1

REPORT INFORMATION
  Report Type: Spontaneous
  Country: BR (occurrence: BR)
  Receive Date: 20230217
  Receipt Date: 20230331
  Transmission Date: 20230418
  Serious: Yes (Other)
  Sender: FDA-Public Use
  Company Number: BR-002147023-NVSC2023BR032781

PATIENT
  Age: 15 Year
  Sex: Male

DRUGS (2)
  1. OMNITROPE [Suspect]
     Active Substance: SOMATROPIN
     Indication: Short stature
     Dosage: 2.5 MG, BID
     Route: 058
     Dates: start: 202109, end: 202203
  2. LETROZOLE [Concomitant]
     Active Substance: LETROZOLE
     Indication: Epiphyses premature fusion
     Dosage: 2.5 MG, QD
     Route: 048
     Dates: start: 202109

REACTIONS (2)
  - Epiphysiolysis [Recovered/Resolved]
  - Arthralgia [Recovered/Resolved]

NARRATIVE: CASE EVENT DATE: 20220101
